FAERS Safety Report 23759636 (Version 2)
Quarter: 2024Q2

REPORT INFORMATION
  Report Type: Report from Study
  Country: CO (occurrence: CO)
  Receive Date: 20240419
  Receipt Date: 20240510
  Transmission Date: 20240716
  Serious: Yes (Death)
  Sender: FDA-Public Use
  Company Number: CO-ABBVIE-5723691

PATIENT
  Age: 86 Year
  Sex: Male
  Weight: 52 kg

DRUGS (2)
  1. VENCLEXTA [Suspect]
     Active Substance: VENETOCLAX
     Indication: Acute myeloid leukaemia
     Dosage: 200 MILLIGRAM, FORM STRENGTH: 100 MG
     Route: 048
     Dates: start: 20230927, end: 20240331
  2. AZACITIDINE [Concomitant]
     Active Substance: AZACITIDINE
     Indication: Product used for unknown indication
     Dosage: 120 MILLIGRAM, FORM STRENGTH: 60 MG
     Route: 058
     Dates: start: 2023, end: 20240326

REACTIONS (9)
  - Pain [Fatal]
  - Platelet count decreased [Not Recovered/Not Resolved]
  - Abdominal discomfort [Not Recovered/Not Resolved]
  - Intestinal infarction [Fatal]
  - Cardiovascular disorder [Fatal]
  - Intestinal ischaemia [Fatal]
  - Haemoglobin decreased [Not Recovered/Not Resolved]
  - Red blood cell count decreased [Not Recovered/Not Resolved]
  - Acute myeloid leukaemia [Fatal]

NARRATIVE: CASE EVENT DATE: 20240301
